FAERS Safety Report 5536446-8 (Version None)
Quarter: 2007Q4

REPORT INFORMATION
  Report Type: 
  Country: None (occurrence: None)
  Receive Date: 20071206
  Receipt Date: 20070119
  Transmission Date: 20080405
  Serious: Yes (Other)
  Sender: FDA-Public Use
  Company Number: US-AMGEN-US202198

PATIENT
  Sex: Female

DRUGS (5)
  1. ENBREL [Suspect]
     Indication: RHEUMATOID ARTHRITIS
     Route: 058
     Dates: start: 20020602, end: 20060520
  2. ENBREL [Suspect]
     Indication: PSORIASIS
  3. MINOCYCLINE HCL [Concomitant]
  4. UNSPECIFIED HORMONE REPLACEMENT THERAPY AGENT [Concomitant]
     Route: 062
  5. UNSPECIFIED TOPICAL PRODUCT [Concomitant]

REACTIONS (2)
  - DIARRHOEA [None]
  - MYELITIS TRANSVERSE [None]
